FAERS Safety Report 6812050-6 (Version None)
Quarter: 2010Q3

REPORT INFORMATION
  Report Type: 
  Country: None (occurrence: None)
  Receive Date: 20100701
  Receipt Date: 20100622
  Transmission Date: 20110219
  Serious: Yes (Other)
  Sender: FDA-Public Use
  Company Number: US-CELGENEUS-163-21880-10060189

PATIENT
  Sex: Male

DRUGS (4)
  1. REVLIMID [Suspect]
     Indication: MULTIPLE MYELOMA
     Route: 048
     Dates: start: 20100613
  2. REVLIMID [Suspect]
     Route: 048
     Dates: start: 20100613
  3. REVLIMID [Suspect]
     Route: 048
     Dates: start: 20100301
  4. REVLIMID [Suspect]
     Route: 048
     Dates: start: 20100301

REACTIONS (2)
  - CATARACT [None]
  - MUSCLE SPASMS [None]
